FAERS Safety Report 13443302 (Version 15)
Quarter: 2017Q3

REPORT INFORMATION
  Report Type: Report from Study
  Country: FR (occurrence: FR)
  Receive Date: 20170414
  Receipt Date: 20170818
  Transmission Date: 20171127
  Serious: Yes (Death, Life-Threatening, Hospitalization, Other)
  Sender: FDA-Public Use
  Company Number: FR-EISAI MEDICAL RESEARCH-EC-2017-026717

PATIENT
  Age: 80 Year
  Sex: Female
  Weight: 45.7 kg

DRUGS (12)
  1. CLINUTREN [Concomitant]
  2. MORPHINE [Concomitant]
     Active Substance: MORPHINE
  3. APROVEL [Concomitant]
     Active Substance: IRBESARTAN
  4. HAVLANE [Concomitant]
     Active Substance: LOPRAZOLAM
  5. PREDNISONE. [Concomitant]
     Active Substance: PREDNISONE
  6. LENVATINIB [Suspect]
     Active Substance: LENVATINIB
     Route: 048
     Dates: start: 20170411, end: 20170426
  7. LENVATINIB [Suspect]
     Active Substance: LENVATINIB
     Route: 048
     Dates: start: 20170427, end: 20170504
  8. OROKEN [Concomitant]
     Active Substance: CEFIXIME
     Indication: URINARY TRACT INFECTION
     Dates: start: 20170308, end: 20170330
  9. LEXOTIL [Concomitant]
  10. DELLICAL [Concomitant]
  11. TUSSIPAX [Concomitant]
     Active Substance: CODEINE\ETHYLMORPHINE HYDROCHLORIDE
  12. LENVATINIB [Suspect]
     Active Substance: LENVATINIB
     Indication: ANAPLASTIC THYROID CANCER
     Route: 048
     Dates: start: 20170221, end: 20170321

REACTIONS (9)
  - Agranulocytosis [Recovered/Resolved]
  - Abdominal lymphadenopathy [Not Recovered/Not Resolved]
  - Asthenia [Not Recovered/Not Resolved]
  - Pulmonary oedema [Fatal]
  - Pyelitis [Not Recovered/Not Resolved]
  - Pulmonary embolism [Not Recovered/Not Resolved]
  - Renal failure [Fatal]
  - Metastases to peritoneum [Not Recovered/Not Resolved]
  - Cardiopulmonary failure [Fatal]

NARRATIVE: CASE EVENT DATE: 20170322
